FAERS Safety Report 6170963-5 (Version None)
Quarter: 2009Q2

REPORT INFORMATION
  Report Type: 
  Country: None (occurrence: None)
  Receive Date: 20090427
  Receipt Date: 20090427
  Transmission Date: 20091009
  Serious: No
  Sender: FDA-Public Use
  Company Number: None

PATIENT
  Age: 40 Year
  Sex: Male
  Weight: 141 kg

DRUGS (13)
  1. FUROSEMIDE [Suspect]
     Indication: CARDIAC FAILURE CONGESTIVE
     Dosage: 80MG IV Q12
     Route: 042
     Dates: start: 20081111, end: 20081112
  2. HYDRALAZINE HCL [Concomitant]
  3. WARFARIN [Concomitant]
  4. SENNA [Concomitant]
  5. DOCUSATE [Concomitant]
  6. ATORVASTATIN [Concomitant]
  7. ISDN [Concomitant]
  8. NIACIN [Concomitant]
  9. FERROUS SULFATE TAB [Concomitant]
  10. M.V.I. [Concomitant]
  11. THIAMINE HCL [Concomitant]
  12. FOLIC ACID [Concomitant]
  13. CARVEDILOL [Concomitant]

REACTIONS (2)
  - BLOOD URIC ACID INCREASED [None]
  - PAIN IN EXTREMITY [None]
